FAERS Safety Report 17106327 (Version 1)
Quarter: 2019Q4

REPORT INFORMATION
  Report Type: Spontaneous
  Country: FR (occurrence: FR)
  Receive Date: 20191203
  Receipt Date: 20191203
  Transmission Date: 20200122
  Serious: Yes (Death, Hospitalization)
  Sender: FDA-Public Use
  Company Number: FR-MYLANLABS-2019M1116729

PATIENT
  Age: 79 Year
  Sex: Male
  Weight: 70 kg

DRUGS (14)
  1. ERBITUX [Suspect]
     Active Substance: CETUXIMAB
     Indication: SQUAMOUS CELL CARCINOMA OF THE HYPOPHARYNX
     Dosage: UNK
     Route: 041
     Dates: start: 20181113, end: 20190111
  2. LOVENOX [Concomitant]
     Active Substance: ENOXAPARIN SODIUM
     Dosage: 2 DOSAGE FORM, QD
     Route: 030
  3. ORAMORPH [Concomitant]
     Active Substance: MORPHINE SULFATE
     Dosage: 100 MILLIGRAM, QD
     Route: 048
  4. ONDANSETRON [Concomitant]
     Active Substance: ONDANSETRON
     Dosage: 24 MILLIGRAM, QD
     Route: 048
  5. KARDEGIC [Concomitant]
     Active Substance: ASPIRIN DL-LYSINE
     Dosage: 75 MILLIGRAM, QD
     Route: 048
  6. TAHOR [Concomitant]
     Active Substance: ATORVASTATIN CALCIUM
     Dosage: 20 MILLIGRAM, QD
     Route: 048
  7. SKENAN [Concomitant]
     Active Substance: MORPHINE SULFATE
     Dosage: 80 MILLIGRAM, QD
     Route: 048
  8. DOXYCYCLINE. [Concomitant]
     Active Substance: DOXYCYCLINE
     Dosage: 100 MILLIGRAM, QD
     Route: 048
  9. ATROVENT [Concomitant]
     Active Substance: IPRATROPIUM BROMIDE
     Dosage: 1.5 MILLIGRAM, QD
     Route: 055
  10. LAROXYL [Concomitant]
     Active Substance: AMITRIPTYLINE HYDROCHLORIDE
     Dosage: 50 GTT DROPS, QD
     Route: 048
  11. TEGRETOL [Concomitant]
     Active Substance: CARBAMAZEPINE
     Dosage: 100 MILLIGRAM, QD
     Route: 048
  12. LANSOPRAZOLE. [Concomitant]
     Active Substance: LANSOPRAZOLE
     Dosage: 15 MILLIGRAM, QD
     Route: 048
  13. CARBOPLATIN. [Suspect]
     Active Substance: CARBOPLATIN
     Indication: SQUAMOUS CELL CARCINOMA OF THE HYPOPHARYNX
     Dosage: 400 MILLIGRAM, MONTHLY
     Route: 041
     Dates: start: 20181113, end: 20190111
  14. ZOLPIDEM [Concomitant]
     Active Substance: ZOLPIDEM TARTRATE
     Dosage: 10 MILLIGRAM, QD
     Route: 048

REACTIONS (1)
  - Pulmonary sepsis [Fatal]

NARRATIVE: CASE EVENT DATE: 20190102
